FAERS Safety Report 10305129 (Version 2)
Quarter: 2014Q3

REPORT INFORMATION
  Report Type: Report from Study
  Country: FR (occurrence: None)
  Receive Date: 20140710
  Receipt Date: 20140902
  Transmission Date: 20150326
  Serious: Yes (Hospitalization)
  Sender: FDA-Public Use
  Company Number: 2013-FR-000421

PATIENT
  Age: 17 Year
  Sex: Female
  Weight: 67.5 kg

DRUGS (4)
  1. CONCERTA [Concomitant]
     Active Substance: METHYLPHENIDATE HYDROCHLORIDE
  2. XYREM [Suspect]
     Active Substance: SODIUM OXYBATE
     Indication: CATAPLEXY
     Route: 048
     Dates: start: 20130701, end: 20130729
  3. XYREM [Suspect]
     Active Substance: SODIUM OXYBATE
     Indication: NARCOLEPSY
     Route: 048
     Dates: start: 20130701, end: 20130729
  4. EFFEXOR (VENLAFAXINE HYDROCHLORIDE) [Concomitant]

REACTIONS (8)
  - Malaise [None]
  - Myalgia [None]
  - Pain in extremity [None]
  - Night sweats [None]
  - Hallucination [None]
  - Abdominal pain [None]
  - Off label use [None]
  - Vomiting [None]

NARRATIVE: CASE EVENT DATE: 2013
